FAERS Safety Report 5957605-6 (Version None)
Quarter: 2008Q4

REPORT INFORMATION
  Report Type: 
  Country: None (occurrence: None)
  Receive Date: 20081117
  Receipt Date: 20081117
  Transmission Date: 20090506
  Serious: Yes (Other)
  Sender: FDA-Public Use
  Company Number: None

PATIENT
  Age: 46 Year
  Weight: 68.0396 kg

DRUGS (1)
  1. BUDEPRION XL150 MG TEVA [Suspect]
     Indication: DEPRESSION
     Dosage: 150 MG -2- TABLETS DAILY PO
     Route: 048
     Dates: start: 20080901, end: 20081014

REACTIONS (3)
  - ABNORMAL BEHAVIOUR [None]
  - CONFUSIONAL STATE [None]
  - LOSS OF EMPLOYMENT [None]
